FAERS Safety Report 5831829-0 (Version None)
Quarter: 2008Q3

REPORT INFORMATION
  Report Type: 
  Country: None (occurrence: None)
  Receive Date: 20080804
  Receipt Date: 20080728
  Transmission Date: 20090109
  Serious: Yes (Hospitalization)
  Sender: FDA-Public Use
  Company Number: US-JNJFOC-20080601993

PATIENT
  Sex: Female
  Weight: 56.7 kg

DRUGS (2)
  1. LEVAQUIN [Suspect]
     Indication: UPPER RESPIRATORY TRACT INFECTION
     Route: 065
  2. PREDNISONE [Concomitant]

REACTIONS (1)
  - EOSINOPHILIC PNEUMONIA [None]
